FAERS Safety Report 8104366 (Version 5)
Quarter: 2013Q3

REPORT INFORMATION
  Report Type: Spontaneous
  Country: US (occurrence: US)
  Receive Date: 20110824
  Receipt Date: 20130829
  Transmission Date: 20140515
  Serious: Yes (Hospitalization)
  Sender: FDA-Public Use
  Company Number: US-GLAXOSMITHKLINE-A0915716A

PATIENT
  Age: 70 Year
  Sex: Male
  Weight: 154.5 kg

DRUGS (7)
  1. AVANDAMET [Suspect]
     Indication: DIABETES MELLITUS
     Route: 048
     Dates: start: 200602, end: 200603
  2. AVANDIA [Suspect]
     Indication: DIABETES MELLITUS
     Dosage: 4MG TWICE PER DAY
     Route: 048
     Dates: start: 200603, end: 200705
  3. INSULIN [Concomitant]
  4. PRINIVIL [Concomitant]
  5. COZAAR [Concomitant]
  6. GLUCOPHAGE [Concomitant]
  7. HCTZ [Concomitant]

REACTIONS (4)
  - Cerebrovascular accident [Not Recovered/Not Resolved]
  - Lacunar infarction [Unknown]
  - Cardiovascular disorder [Unknown]
  - Cardiac disorder [Unknown]
